FAERS Safety Report 11709989 (Version 2)
Quarter: 2015Q4

REPORT INFORMATION
  Report Type: Spontaneous
  Country: US (occurrence: US)
  Receive Date: 20151104
  Receipt Date: 20151110
  Transmission Date: 20160304
  Serious: No
  Sender: FDA-Public Use
  Company Number: US-ELI_LILLY_AND_COMPANY-US201108009470

PATIENT
  Sex: Female

DRUGS (1)
  1. FORTEO [Suspect]
     Active Substance: TERIPARATIDE
     Indication: OSTEOPOROSIS
     Dosage: 20 UG, QD
     Dates: end: 20111011

REACTIONS (5)
  - Nightmare [Unknown]
  - Intentional product misuse [Unknown]
  - Abdominal discomfort [Recovering/Resolving]
  - Gastrointestinal motility disorder [Recovering/Resolving]
  - Diarrhoea [Recovered/Resolved]
